FAERS Safety Report 11252152 (Version 1)
Quarter: 2015Q3

REPORT INFORMATION
  Report Type: Spontaneous
  Country: US (occurrence: US)
  Receive Date: 20150708
  Receipt Date: 20150708
  Transmission Date: 20151125
  Serious: Yes (Other)
  Sender: FDA-Public Use
  Company Number: US-ELI_LILLY_AND_COMPANY-US201303009233

PATIENT
  Sex: Female
  Weight: 47.62 kg

DRUGS (7)
  1. FENTANYL. [Concomitant]
     Active Substance: FENTANYL
     Route: 062
  2. GEMZAR [Suspect]
     Active Substance: GEMCITABINE HYDROCHLORIDE
     Indication: BREAST CANCER
     Dosage: 1100 MG, UNK
     Route: 042
     Dates: start: 20120502, end: 20120807
  3. DEXAMETHASONE. [Concomitant]
     Active Substance: DEXAMETHASONE
  4. WARFARIN [Concomitant]
     Active Substance: WARFARIN
  5. ZOFRAN [Concomitant]
     Active Substance: ONDANSETRON HYDROCHLORIDE
  6. KYTRIL [Concomitant]
     Active Substance: GRANISETRON HYDROCHLORIDE
  7. MSIR [Concomitant]
     Active Substance: MORPHINE SULFATE

REACTIONS (1)
  - Malignant neoplasm progression [Unknown]
